FAERS Safety Report 14156105 (Version 1)
Quarter: 2017Q4

REPORT INFORMATION
  Report Type: Report from Study
  Country: FR (occurrence: FR)
  Receive Date: 20171103
  Receipt Date: 20171103
  Transmission Date: 20180321
  Serious: Yes (Other)
  Sender: FDA-Public Use
  Company Number: FR-ROCHE-1931245

PATIENT

DRUGS (2)
  1. INTERFERON ALFA-2A [Suspect]
     Active Substance: INTERFERON ALFA-2A
     Indication: CHRONIC HEPATITIS C
     Dosage: 48 WEEKS, EITHER (1) AT A DOSE OF 6 MU ADMINISTERED SUBCUTANEOUSLY 3 TIMES PER WEEK FOR 24 WEEKS, FO
     Route: 058
  2. RIBAVIRIN. [Suspect]
     Active Substance: RIBAVIRIN
     Indication: CHRONIC HEPATITIS C
     Dosage: AT A DOSAGE OF EITHER 1000 MG TWICE PER DAY (FOR PATIENTS WITH A BODY WEIGHT OF !75 KG) OR 1200 MG T
     Route: 048

REACTIONS (14)
  - Anaemia [Unknown]
  - Depression [Unknown]
  - Neutropenia [Unknown]
  - Epilepsy [Unknown]
  - Insomnia [Unknown]
  - Tachycardia [Unknown]
  - Myalgia [Unknown]
  - Decreased appetite [Unknown]
  - Weight decreased [Unknown]
  - Alanine aminotransferase increased [Unknown]
  - Fatigue [Unknown]
  - Pneumonia [Unknown]
  - Vomiting [Unknown]
  - Diabetes mellitus [Unknown]
